FAERS Safety Report 24778865 (Version 1)
Quarter: 2024Q4

REPORT INFORMATION
  Report Type: Spontaneous
  Country: CH (occurrence: CH)
  Receive Date: 20241226
  Receipt Date: 20241226
  Transmission Date: 20250114
  Serious: Yes (Hospitalization)
  Sender: ELI LILLY AND COMPANY
  Company Number: None

PATIENT
  Age: 76 Year
  Sex: Male
  Weight: 63 kg

DRUGS (10)
  1. CYMBALTA [Suspect]
     Active Substance: DULOXETINE HYDROCHLORIDE
     Indication: Urge incontinence
     Dosage: WAHRSCHEINLICH SEIT 05.10.2024
     Route: 048
     Dates: start: 20241005, end: 20241102
  2. CYMBALTA [Suspect]
     Active Substance: DULOXETINE HYDROCHLORIDE
     Indication: Stress urinary incontinence
  3. MIRABEGRON [Suspect]
     Active Substance: MIRABEGRON
     Indication: Urge incontinence
     Dosage: WAHRSCHEINLICH SEIT 05.10.2024
     Route: 048
     Dates: start: 20241005, end: 20241102
  4. MIRABEGRON [Suspect]
     Active Substance: MIRABEGRON
     Indication: Stress urinary incontinence
  5. VESICARE [Suspect]
     Active Substance: SOLIFENACIN SUCCINATE
     Indication: Urge incontinence
     Dosage: WAHRSCHEINLICH SEIT 05.10.2024
     Route: 048
     Dates: start: 20241005, end: 20241102
  6. VESICARE [Suspect]
     Active Substance: SOLIFENACIN SUCCINATE
     Indication: Stress urinary incontinence
  7. TORSEMIDE [Concomitant]
     Active Substance: TORSEMIDE
     Indication: Product used for unknown indication
     Route: 048
     Dates: end: 20241106
  8. INDERAL [Concomitant]
     Active Substance: PROPRANOLOL HYDROCHLORIDE
     Indication: Tremor
     Dosage: 20 MG, UNKNOWN
     Route: 048
     Dates: start: 20241005, end: 20241112
  9. BROMAZEPAM [Concomitant]
     Active Substance: BROMAZEPAM
     Indication: Product used for unknown indication
     Dosage: 3 MG, UNKNOWN
     Route: 048
  10. TIZANIDINE [Concomitant]
     Active Substance: TIZANIDINE
     Indication: Product used for unknown indication
     Route: 048
     Dates: end: 20241101

REACTIONS (3)
  - Parkinson^s disease [Recovering/Resolving]
  - Gait disturbance [Recovering/Resolving]
  - Off label use [Unknown]

NARRATIVE: CASE EVENT DATE: 20241005
